FAERS Safety Report 7559096-0 (Version None)
Quarter: 2011Q2

REPORT INFORMATION
  Report Type: 
  Country: None (occurrence: None)
  Receive Date: 20110613
  Receipt Date: 20110525
  Transmission Date: 20111010
  Serious: Yes (Other)
  Sender: FDA-Public Use
  Company Number: 2011SP024564

PATIENT
  Age: 72 Year
  Sex: Female

DRUGS (1)
  1. CLOTRIMAZOLE [Suspect]
     Indication: TINEA PEDIS
     Dosage: ;TOP
     Route: 061

REACTIONS (2)
  - PERIPHERAL SENSORY NEUROPATHY [None]
  - NEURALGIA [None]
